FAERS Safety Report 18202969 (Version 1)
Quarter: 2020Q3

REPORT INFORMATION
  Report Type: Spontaneous
  Country: US (occurrence: US)
  Receive Date: 20200827
  Receipt Date: 20200827
  Transmission Date: 20201103
  Serious: Yes (Other)
  Sender: FDA-Public Use
  Company Number: US-PFIZER INC-2020329776

PATIENT
  Age: 64 Year
  Sex: Female

DRUGS (4)
  1. PREMARIN [Suspect]
     Active Substance: ESTROGENS, CONJUGATED
     Indication: MENOPAUSAL SYMPTOMS
     Dosage: UNK
  2. MINIVELLE [Suspect]
     Active Substance: ESTRADIOL
     Indication: MENOPAUSAL SYMPTOMS
     Dosage: UNK (0.1 MG/DAY, 1 TRANSDERMAL PATCH EVERY 4 DAYS)
     Route: 062
  3. MINIVELLE [Suspect]
     Active Substance: ESTRADIOL
     Dosage: UNK (0.5 MG/DAY, 1 TRANSDERMAL PATCH EVERY 4 DAYS)
     Route: 062
     Dates: start: 2019
  4. VIVELLE?DOT [Suspect]
     Active Substance: ESTRADIOL
     Indication: MENOPAUSAL SYMPTOMS
     Dosage: UNK

REACTIONS (6)
  - Temperature intolerance [Unknown]
  - Autoimmune thyroiditis [Unknown]
  - Pharyngeal neoplasm [Unknown]
  - Fatigue [Unknown]
  - Hot flush [Unknown]
  - Thyroid disorder [Unknown]

NARRATIVE: CASE EVENT DATE: 2016
